FAERS Safety Report 7498885-8 (Version None)
Quarter: 2011Q2

REPORT INFORMATION
  Report Type: 
  Country: None (occurrence: None)
  Receive Date: 20110524
  Receipt Date: 20110426
  Transmission Date: 20111010
  Serious: Yes (Other)
  Sender: FDA-Public Use
  Company Number: US-BAYER-201021646NA

PATIENT
  Sex: Female
  Weight: 60.771 kg

DRUGS (8)
  1. YASMIN [Suspect]
     Indication: PRODUCT USED FOR UNKNOWN INDICATION
     Dosage: AS USED DOSE: UNK
     Route: 048
     Dates: start: 20020101, end: 20070101
  2. NEXIUM [Concomitant]
  3. YAZ [Suspect]
     Dosage: UNK
     Dates: start: 20070101, end: 20070101
  4. ASCORBIC ACID [Concomitant]
  5. PERCOCET [Concomitant]
  6. CIPROFLOXACIN [Concomitant]
     Dosage: 250 MG, UNK
     Dates: start: 20070216
  7. MULTI-VITAMIN [Concomitant]
  8. VITAMIN B-12 [Concomitant]

REACTIONS (3)
  - GALLBLADDER DISORDER [None]
  - CHOLELITHIASIS [None]
  - CHOLECYSTITIS CHRONIC [None]
